FAERS Safety Report 14988644 (Version 3)
Quarter: 2018Q3

REPORT INFORMATION
  Report Type: Report from Study
  Country: JP (occurrence: JP)
  Receive Date: 20180608
  Receipt Date: 20180910
  Transmission Date: 20181010
  Serious: Yes (Life-Threatening, Hospitalization)
  Sender: FDA-Public Use
  Company Number: JP-PFIZER INC-2018228941

PATIENT
  Age: 85 Year
  Sex: Female
  Weight: 39 kg

DRUGS (13)
  1. GLYCYRON /00467202/ [Concomitant]
     Dosage: 2 DF, UNK
     Route: 048
  2. JANUVIA [Concomitant]
     Active Substance: SITAGLIPTIN PHOSPHATE
     Dosage: 50 MG, 1X/DAY, JUST BEFORE THE BREAKFAST
  3. NOVORAPID [Concomitant]
     Active Substance: INSULIN ASPART
     Dosage: 7 UNITS AT THE MORNING, 6 UNITS AT NOON, 5 UNITS AT THE EVENING, JUST BEFORE THE EACH MEALS
     Route: 058
  4. TRESIBA [Concomitant]
     Active Substance: INSULIN DEGLUDEC
     Dosage: 5 UNITS AT THE EVENING
     Route: 058
  5. VOLTAREN [Concomitant]
     Active Substance: DICLOFENAC SODIUM
     Route: 054
  6. ALLELOCK [Concomitant]
     Active Substance: OLOPATADINE HYDROCHLORIDE
     Route: 048
  7. XELJANZ [Suspect]
     Active Substance: TOFACITINIB CITRATE
     Dosage: 5 MG, 1X/DAY
     Route: 048
     Dates: start: 20171226
  8. PROMAC /01312301/ [Concomitant]
     Active Substance: POLAPREZINC
     Indication: PROPHYLAXIS
     Route: 048
  9. XELJANZ [Suspect]
     Active Substance: TOFACITINIB CITRATE
     Indication: RHEUMATOID ARTHRITIS
     Dosage: 5 MG, 2X/DAY
     Route: 048
     Dates: start: 20171127, end: 20171225
  10. AZULFIDINE [Concomitant]
     Active Substance: SULFASALAZINE
     Indication: RHEUMATOID ARTHRITIS
     Dosage: UNK
  11. THIOLA [Concomitant]
     Active Substance: TIOPRONIN
     Indication: RHEUMATOID ARTHRITIS
     Route: 048
  12. LOQOA [Concomitant]
     Route: 062
  13. CELECOX [Concomitant]
     Active Substance: CELECOXIB
     Dosage: 100 UNK, UNK
     Route: 048

REACTIONS (7)
  - Acute myocardial infarction [Unknown]
  - Anaemia [Unknown]
  - Back pain [Recovering/Resolving]
  - Decreased appetite [Recovering/Resolving]
  - Dementia [Recovering/Resolving]
  - Condition aggravated [Unknown]
  - Myocardial rupture [Unknown]

NARRATIVE: CASE EVENT DATE: 20171205
